FAERS Safety Report 5262730-1 (Version None)
Quarter: 2007Q1

REPORT INFORMATION
  Report Type: 
  Country: None (occurrence: None)
  Receive Date: 20070308
  Receipt Date: 20070220
  Transmission Date: 20070707
  Serious: Yes (Other)
  Sender: FDA-Public Use
  Company Number: 060001K07CAN

PATIENT
  Sex: Female

DRUGS (2)
  1. SEROPHENE [Suspect]
     Indication: INFERTILITY
     Dates: start: 20061219, end: 20061223
  2. SEROPHENE [Suspect]
     Indication: INFERTILITY
     Dates: start: 20070219, end: 20070223

REACTIONS (1)
  - JAUNDICE [None]
